FAERS Safety Report 8786841 (Version 1)
Quarter: 2012Q4

REPORT INFORMATION
  Report Type: Report from Study
  Country: US (occurrence: US)
  Receive Date: 20120914
  Receipt Date: 20120914
  Transmission Date: 20130627
  Serious: No
  Sender: FDA-Public Use
  Company Number: US-VERTEX PHARMACEUTICAL INC.-AE-2012-011157

PATIENT
  Sex: Female

DRUGS (5)
  1. INCIVEK [Suspect]
     Indication: HEPATITIS C
     Route: 048
     Dates: end: 201206
  2. RIBAVIRIN [Concomitant]
     Indication: HEPATITIS C
  3. PEGASYS [Concomitant]
     Indication: HEPATITIS C
  4. LEVOTHYROXIN [Concomitant]
  5. MULTIVITAMIN [Concomitant]

REACTIONS (2)
  - Pain [Unknown]
  - Fatigue [Unknown]
